FAERS Safety Report 12500238 (Version 2)
Quarter: 2016Q3

REPORT INFORMATION
  Report Type: Report from Study
  Country: GB (occurrence: GB)
  Receive Date: 20160627
  Receipt Date: 20160707
  Transmission Date: 20161109
  Serious: Yes (Hospitalization)
  Sender: FDA-Public Use
  Company Number: GB-JNJFOC-20160615272

PATIENT
  Age: 33 Year
  Sex: Male
  Weight: 82 kg

DRUGS (31)
  1. ALPHOSYL [Concomitant]
     Route: 065
     Dates: start: 20101208
  2. DIFFLAM [Concomitant]
     Active Substance: BENZYDAMINE HYDROCHLORIDE
     Route: 065
     Dates: start: 20101208
  3. DIHYDROCODEINE [Concomitant]
     Active Substance: DIHYDROCODEINE
     Route: 065
     Dates: start: 20101208
  4. METOCLOPRAMIDE. [Concomitant]
     Active Substance: METOCLOPRAMIDE
     Route: 065
     Dates: start: 20101208
  5. XAMIOL [Concomitant]
     Active Substance: BETAMETHASONE DIPROPIONATE\CALCIPOTRIENE HYDRATE
     Route: 065
     Dates: start: 20101208
  6. CETIRIZINE [Concomitant]
     Active Substance: CETIRIZINE HYDROCHLORIDE
     Route: 065
     Dates: start: 20110515
  7. ETODOLAC. [Concomitant]
     Active Substance: ETODOLAC
     Route: 065
     Dates: start: 20151217
  8. BETAMETHASONE. [Concomitant]
     Active Substance: BETAMETHASONE
     Route: 065
     Dates: start: 20101208
  9. GAVISCON [Concomitant]
     Active Substance: ALUMINUM HYDROXIDE\MAGNESIUM CARBONATE
     Route: 065
     Dates: start: 20101208
  10. CODEINE [Concomitant]
     Active Substance: CODEINE
     Route: 065
     Dates: start: 20130425
  11. GOLIMUMAB [Concomitant]
     Active Substance: GOLIMUMAB
     Route: 065
     Dates: start: 20141222
  12. STELARA [Suspect]
     Active Substance: USTEKINUMAB
     Indication: PSORIASIS
     Route: 058
     Dates: start: 20101116, end: 20140606
  13. PANTOPRAZOLE [Concomitant]
     Active Substance: PANTOPRAZOLE SODIUM
     Route: 065
     Dates: start: 20101208
  14. ESOMEPRAZOLE [Concomitant]
     Active Substance: ESOMEPRAZOLE
     Route: 065
     Dates: start: 20110525
  15. BETAMETHASONE. [Concomitant]
     Active Substance: BETAMETHASONE
     Route: 065
     Dates: start: 20110115
  16. COAL TAR. [Concomitant]
     Active Substance: COAL TAR
     Route: 065
     Dates: start: 20101208
  17. CO-DYDRAMOL [Concomitant]
     Active Substance: ACETAMINOPHEN\DIHYDROCODEINE
     Route: 065
     Dates: start: 20101208
  18. MOVICOL [Concomitant]
     Active Substance: POLYETHYLENE GLYCOL 3350\POTASSIUM CHLORIDE\SODIUM BICARBONATE\SODIUM CHLORIDE
     Route: 065
     Dates: start: 20110411
  19. CHAMPIX [Concomitant]
     Active Substance: VARENICLINE TARTRATE
     Route: 065
     Dates: start: 20121101
  20. STELARA [Suspect]
     Active Substance: USTEKINUMAB
     Indication: PSORIASIS
     Route: 058
     Dates: start: 20151210
  21. MIRTAZAPINE. [Concomitant]
     Active Substance: MIRTAZAPINE
     Route: 065
     Dates: start: 20101208
  22. LORATADINE. [Concomitant]
     Active Substance: LORATADINE
     Route: 065
     Dates: start: 20101208
  23. AMOXICILLIN. [Concomitant]
     Active Substance: AMOXICILLIN
     Route: 065
     Dates: start: 20160317, end: 20160331
  24. DOVONEX [Concomitant]
     Active Substance: CALCIPOTRIENE
     Route: 065
     Dates: start: 20101208
  25. REBOXETINE [Concomitant]
     Active Substance: REBOXETINE
     Route: 065
     Dates: start: 20101208
  26. DIHYDROCODEINE [Concomitant]
     Active Substance: DIHYDROCODEINE
     Route: 065
     Dates: start: 20111115
  27. DOMPERIDONE [Concomitant]
     Active Substance: DOMPERIDONE
     Route: 065
     Dates: start: 20121115
  28. TRAMADOL. [Concomitant]
     Active Substance: TRAMADOL
     Route: 065
     Dates: start: 20101208
  29. NERISONE [Concomitant]
     Active Substance: DIFLUCORTOLONE VALERATE
     Route: 065
     Dates: start: 20101208
  30. MORPHINE SULPHATE [Concomitant]
     Active Substance: MORPHINE SULFATE
     Route: 065
     Dates: start: 20140401
  31. TAMSULOSIN HYDROCHLORIDE. [Concomitant]
     Active Substance: TAMSULOSIN HYDROCHLORIDE
     Route: 065
     Dates: start: 20151210, end: 20160127

REACTIONS (5)
  - Thrombosis [Recovered/Resolved]
  - Nephrolithiasis [Unknown]
  - Secretion discharge [Unknown]
  - Pain [Recovered/Resolved]
  - Post procedural infection [Recovered/Resolved]

NARRATIVE: CASE EVENT DATE: 20160214
